FAERS Safety Report 7287863-X (Version None)
Quarter: 2011Q1

REPORT INFORMATION
  Report Type: 
  Country: None (occurrence: None)
  Receive Date: 20110207
  Receipt Date: 20110207
  Transmission Date: 20110831
  Serious: No
  Sender: FDA-Public Use
  Company Number: None

PATIENT
  Sex: Female
  Weight: 54.4316 kg

DRUGS (2)
  1. ZITHROMAX [Suspect]
     Indication: LUNG INFECTION
     Dosage: ONE TSP 3  X A WEEK
  2. ZITHROMAX [Suspect]
     Indication: CYSTIC FIBROSIS
     Dosage: ONE TSP 3  X A WEEK

REACTIONS (1)
  - DRUG INEFFECTIVE [None]
